FAERS Safety Report 7463241-5 (Version None)
Quarter: 2011Q2

REPORT INFORMATION
  Report Type: 
  Country: None (occurrence: None)
  Receive Date: 20110506
  Receipt Date: 20110501
  Transmission Date: 20111010
  Serious: Yes (Death)
  Sender: FDA-Public Use
  Company Number: HU-ROCHE-774143

PATIENT
  Sex: Female
  Weight: 60 kg

DRUGS (2)
  1. PANTOPRAZOLE [Concomitant]
  2. PEGASYS [Suspect]
     Route: 058
     Dates: start: 20100701

REACTIONS (3)
  - CHOLECYSTITIS [None]
  - CARDIAC ARREST [None]
  - PERITONITIS [None]
